FAERS Safety Report 8445135-1 (Version None)
Quarter: 2012Q2

REPORT INFORMATION
  Report Type: 
  Country: None (occurrence: None)
  Receive Date: 20120612
  Receipt Date: 20120612
  Transmission Date: 20120825
  Serious: Yes (Other)
  Sender: FDA-Public Use
  Company Number: None

PATIENT
  Age: 10 Year
  Sex: Male

DRUGS (2)
  1. ZIPRASIDONE HYDROCHLORIDE [Suspect]
     Indication: AGGRESSION
     Dosage: 20MG QAM PO
     Route: 048
     Dates: start: 20120210, end: 20120213
  2. ZIPRASIDONE HCL [Suspect]
     Dosage: 40MG QHS PO
     Route: 048
     Dates: start: 20120210, end: 20120213

REACTIONS (4)
  - BLOOD PRESSURE DECREASED [None]
  - DEPRESSED LEVEL OF CONSCIOUSNESS [None]
  - LETHARGY [None]
  - HEART RATE DECREASED [None]
